FAERS Safety Report 7655135-7 (Version None)
Quarter: 2011Q3

REPORT INFORMATION
  Report Type: 
  Country: None (occurrence: None)
  Receive Date: 20110801
  Receipt Date: 20110715
  Transmission Date: 20111222
  Serious: Yes (Other)
  Sender: FDA-Public Use
  Company Number: 2011MA009299

PATIENT
  Age: 61 Year
  Sex: Female

DRUGS (10)
  1. LOSARTAN POTASSIUM [Concomitant]
  2. BENDROFLUMETHIAZIDE [Concomitant]
  3. DILTIAZEM HYDROCHLORIDE [Suspect]
     Dosage: 200 MG;QD
     Dates: start: 20101006
  4. SIMVASTATIN [Concomitant]
  5. ACETYLSALICYLIC ACID SRT [Concomitant]
  6. DANDELION [Concomitant]
  7. BISOPROLOL FUMARATE [Suspect]
     Dates: start: 20101001, end: 20101006
  8. HERBAL MEDICATION [Concomitant]
  9. RAMIPRIL [Suspect]
     Indication: BLOOD PRESSURE
     Dosage: 2.5 MG
     Dates: start: 20101118
  10. INDAPAMIDE [Concomitant]

REACTIONS (2)
  - VISUAL IMPAIRMENT [None]
  - VISION BLURRED [None]
